FAERS Safety Report 6647288-4 (Version None)
Quarter: 2010Q1

REPORT INFORMATION
  Report Type: 
  Country: None (occurrence: None)
  Receive Date: 20100323
  Receipt Date: 20100317
  Transmission Date: 20100710
  Serious: Yes (Other)
  Sender: FDA-Public Use
  Company Number: A0851462A

PATIENT
  Age: 52 Year
  Sex: Male

DRUGS (4)
  1. AVANDIA [Suspect]
     Route: 048
     Dates: start: 20050101, end: 20100101
  2. METFORMIN HCL [Concomitant]
  3. CARVEDILOL [Concomitant]
  4. SULFONYLUREA [Concomitant]

REACTIONS (2)
  - EJECTION FRACTION DECREASED [None]
  - PULMONARY HYPERTENSION [None]
